FAERS Safety Report 6539153-8 (Version None)
Quarter: 2010Q1

REPORT INFORMATION
  Report Type: 
  Country: None (occurrence: None)
  Receive Date: 20100110
  Receipt Date: 20091222
  Transmission Date: 20100710
  Serious: Yes (Death, Hospitalization)
  Sender: FDA-Public Use
  Company Number: 2009-00116

PATIENT
  Age: 53 Year
  Sex: Male

DRUGS (4)
  1. SIMVASTATIN [Suspect]
     Indication: BLOOD CHOLESTEROL ABNORMAL
     Dosage: ORAL
     Route: 048
  2. ASPIRIN [Concomitant]
  3. DIPYRIDAMOLE [Concomitant]
  4. SALICYLATES NOS [Concomitant]

REACTIONS (16)
  - ACUTE RESPIRATORY DISTRESS SYNDROME [None]
  - ANTINUCLEAR ANTIBODY POSITIVE [None]
  - BALANCE DISORDER [None]
  - CEREBELLAR INFARCTION [None]
  - DEEP VEIN THROMBOSIS [None]
  - DIPLOPIA [None]
  - DIZZINESS [None]
  - HAEMATEMESIS [None]
  - INTERNATIONAL NORMALISED RATIO INCREASED [None]
  - LIVEDO RETICULARIS [None]
  - PLATELET COUNT INCREASED [None]
  - PULMONARY EMBOLISM [None]
  - RASH [None]
  - RENAL FAILURE [None]
  - SPEECH DISORDER [None]
  - VOMITING [None]
